FAERS Safety Report 7384742-4 (Version None)
Quarter: 2011Q1

REPORT INFORMATION
  Report Type: 
  Country: None (occurrence: None)
  Receive Date: 20110330
  Receipt Date: 20110317
  Transmission Date: 20110831
  Serious: Yes (Other)
  Sender: FDA-Public Use
  Company Number: PHHY2011CA10172

PATIENT
  Sex: Female

DRUGS (2)
  1. STATEX [Concomitant]
     Dosage: 5 MG, UNK
     Dates: start: 20110206
  2. SANDOSTATIN LAR [Suspect]
     Indication: PANCREATIC NEUROENDOCRINE TUMOUR
     Dosage: 20 MG, EVERY 4 WEEKS
     Route: 030
     Dates: start: 20110204

REACTIONS (4)
  - FATIGUE [None]
  - NAUSEA [None]
  - DIARRHOEA [None]
  - HALLUCINATION, VISUAL [None]
